FAERS Safety Report 5362985-9 (Version None)
Quarter: 2007Q2

REPORT INFORMATION
  Report Type: 
  Country: None (occurrence: None)
  Receive Date: 20070615
  Receipt Date: 20070531
  Transmission Date: 20071010
  Serious: Yes (Death, Hospitalization)
  Sender: FDA-Public Use
  Company Number: 2007001001

PATIENT
  Age: 60 Year
  Sex: Female

DRUGS (5)
  1. TARCEVA [Suspect]
     Indication: NEOPLASM MALIGNANT
     Dosage: 150 MG (QD), ORAL
     Route: 048
     Dates: start: 20061113, end: 20061206
  2. ESOMEPRAZOLE (ESOMEPRAZOLE) [Concomitant]
  3. PREVISCAN (FLUINDIONE) [Concomitant]
  4. ATHYMIL (MIANSERIN HYDROCHLORIDE) [Concomitant]
  5. IMOVANE (ZOPICLONE) [Concomitant]

REACTIONS (1)
  - OEDEMA PERIPHERAL [None]
